FAERS Safety Report 5226829-8 (Version None)
Quarter: 2007Q1

REPORT INFORMATION
  Report Type: 
  Country: None (occurrence: None)
  Receive Date: 20070130
  Receipt Date: 20070127
  Transmission Date: 20070707
  Serious: Yes (Hospitalization)
  Sender: FDA-Public Use
  Company Number: 230614

PATIENT
  Age: 67 Year
  Sex: Female
  Weight: 70 kg

DRUGS (5)
  1. AVASTIN [Suspect]
     Indication: COLORECTAL CANCER
     Dosage: 548 MG, Q2W, INTRAVENOUS
     Route: 042
     Dates: start: 20050905, end: 20051219
  2. AVASTIN [Suspect]
  3. AVASTIN [Suspect]
  4. CAPECITABINE (CAPECITABINE) [Suspect]
     Indication: COLORECTAL CANCER
     Dosage: 3000 MG, QD, ORAL
     Route: 048
     Dates: start: 20050905, end: 20060101
  5. IRINOTECAN HCL [Suspect]
     Indication: COLORECTAL CANCER
     Dosage: 372 MG, Q3W, INTRAVENOUS
     Route: 042
     Dates: start: 20050905, end: 20051219

REACTIONS (1)
  - VISUAL ACUITY REDUCED [None]
